FAERS Safety Report 25756846 (Version 1)
Quarter: 2025Q3

REPORT INFORMATION
  Report Type: Spontaneous
  Country: KR (occurrence: KR)
  Receive Date: 20250903
  Receipt Date: 20250903
  Transmission Date: 20251020
  Serious: Yes (Death, Other)
  Sender: BRACCO
  Company Number: KR-BRACCO-2025KR05853

PATIENT
  Age: 72 Year
  Sex: Female

DRUGS (1)
  1. IOMERON [Suspect]
     Active Substance: IOMEPROL
     Indication: Computerised tomogram abdomen
     Route: 042
     Dates: start: 20250710, end: 20250710

REACTIONS (1)
  - Cardiac arrest [Fatal]

NARRATIVE: CASE EVENT DATE: 20250710
